FAERS Safety Report 15981705 (Version 1)
Quarter: 2019Q1

REPORT INFORMATION
  Report Type: Spontaneous
  Country: US (occurrence: US)
  Receive Date: 20190219
  Receipt Date: 20190219
  Transmission Date: 20190418
  Serious: No
  Sender: FDA-Public Use
  Company Number: US-BAYER-2019-034583

PATIENT
  Age: 67 Year
  Sex: Male
  Weight: 90 kg

DRUGS (1)
  1. MIRALAX [Suspect]
     Active Substance: POLYETHYLENE GLYCOL 3350
     Dosage: UNK UNK, QD
     Route: 048
     Dates: start: 201902

REACTIONS (3)
  - Abdominal distension [Unknown]
  - Bowel movement irregularity [Unknown]
  - Product label issue [None]

NARRATIVE: CASE EVENT DATE: 201902
